FAERS Safety Report 24006638 (Version 1)
Quarter: 2024Q2

REPORT INFORMATION
  Report Type: Report from Study
  Country: GB (occurrence: GB)
  Receive Date: 20240624
  Receipt Date: 20240624
  Transmission Date: 20240716
  Serious: Yes (Other)
  Sender: FDA-Public Use
  Company Number: GB-ABBVIE-4702488

PATIENT
  Sex: Female

DRUGS (19)
  1. CARBIDOPA\LEVODOPA [Suspect]
     Active Substance: CARBIDOPA\LEVODOPA
     Indication: Parkinson^s disease
     Dosage: MD: 10.8   CR: 2.0  ED: 1.2, 20MGS/5MGS
     Route: 050
     Dates: start: 202303, end: 20230313
  2. CARBIDOPA\LEVODOPA [Suspect]
     Active Substance: CARBIDOPA\LEVODOPA
     Dosage: MD: 10.8, ED: 1.4, CR: 2.2,
     Route: 050
     Dates: start: 2023, end: 2023
  3. CARBIDOPA\LEVODOPA [Suspect]
     Active Substance: CARBIDOPA\LEVODOPA
     Dosage: MD:10.8MLS CR:2.4MLS ED:1.4MLS, 20MGS/5MGS,
     Route: 050
     Dates: start: 2023
  4. CARBIDOPA\LEVODOPA [Suspect]
     Active Substance: CARBIDOPA\LEVODOPA
     Dosage: MD:  10.8 MLS  CR:  2.2 MLS/HR ED: 1.4 MLS?LAST ADMIN DATE 2023
     Route: 050
     Dates: start: 202303
  5. SINEMET CR [Concomitant]
     Active Substance: CARBIDOPA\LEVODOPA
     Indication: Product used for unknown indication
     Dosage: HALF X 2, 25/100MG?FREQUENCY TEXT: 2 AT NIGHT
  6. SINEMET CR [Concomitant]
     Active Substance: CARBIDOPA\LEVODOPA
     Indication: Product used for unknown indication
     Dosage: FREQUENCY TEXT: 2 AT NIGHT
  7. SINEMET CR [Concomitant]
     Active Substance: CARBIDOPA\LEVODOPA
     Indication: Product used for unknown indication
     Dosage: 100/25 MG AT 10 PM?FREQUENCY TEXT: 2 AT NIGHT?FREQUENCY TEXT: NOCTE 10PM
  8. RASAGILINE [Concomitant]
     Active Substance: RASAGILINE\RASAGILINE MESYLATE
     Indication: Product used for unknown indication
     Dosage: 1 MILLIGRAMS AT 8 AM
  9. KEPPRA [Concomitant]
     Active Substance: LEVETIRACETAM
     Indication: Product used for unknown indication
  10. PRAMIPEXOLE [Concomitant]
     Active Substance: PRAMIPEXOLE\PRAMIPEXOLE DIHYDROCHLORIDE
     Indication: Product used for unknown indication
     Dosage: 0.52 MILLIGRAMS; 0.26 TWO TABLETS AT 8 AM, MR
     Route: 048
  11. FLUCLOXACILLIN [Concomitant]
     Active Substance: FLUCLOXACILLIN
     Indication: Product used for unknown indication
  12. PIPEXUS [Concomitant]
     Indication: Product used for unknown indication
     Dosage: FREQUENCY TEXT: ONCE DAILY 8AM
  13. CLONAZEPAM [Concomitant]
     Active Substance: CLONAZEPAM
     Indication: Product used for unknown indication
     Dosage: FREQUENCY TEXT: ONE AT 10:00 PM
  14. CLONAZEPAM [Concomitant]
     Active Substance: CLONAZEPAM
     Indication: Product used for unknown indication
     Dosage: FREQUENCY TEXT: ONE AT 10:00 PM
  15. CITALOPRAM [Concomitant]
     Active Substance: CITALOPRAM\CITALOPRAM HYDROBROMIDE
     Indication: Product used for unknown indication
     Dates: start: 2024
  16. CITALOPRAM [Concomitant]
     Active Substance: CITALOPRAM\CITALOPRAM HYDROBROMIDE
     Indication: Product used for unknown indication
  17. AMANTADINE [Concomitant]
     Active Substance: AMANTADINE
     Indication: Product used for unknown indication
     Dosage: FREQUENCY TEXT: ONE 08:00 AM AND 12 NOON
  18. VITAMIN B12 [Concomitant]
     Active Substance: CYANOCOBALAMIN
     Indication: Product used for unknown indication
     Dosage: THREE 08:00 AM
  19. POLYETHYLENE GLYCOL 3350\POTASSIUM CHLORIDE\SODIUM BICARBONATE\SODIUM [Concomitant]
     Active Substance: POLYETHYLENE GLYCOL 3350\POTASSIUM CHLORIDE\SODIUM BICARBONATE\SODIUM CHLORIDE
     Indication: Constipation

REACTIONS (49)
  - Skin cancer [Unknown]
  - On and off phenomenon [Recovering/Resolving]
  - Movement disorder [Unknown]
  - Hallucination [Unknown]
  - Skin mass [Unknown]
  - Therapeutic product effect incomplete [Not Recovered/Not Resolved]
  - Stoma site erythema [Recovered/Resolved]
  - Fatigue [Unknown]
  - Muscle rigidity [Not Recovered/Not Resolved]
  - Weight decreased [Recovered/Resolved]
  - Freezing phenomenon [Recovered/Resolved]
  - Depressed mood [Not Recovered/Not Resolved]
  - Balance disorder [Not Recovered/Not Resolved]
  - Dyskinesia [Unknown]
  - Tremor [Unknown]
  - Middle insomnia [Unknown]
  - Constipation [Recovered/Resolved]
  - Muscular weakness [Not Recovered/Not Resolved]
  - General symptom [Unknown]
  - Fall [Unknown]
  - Infected dermal cyst [Recovered/Resolved]
  - Hypoaesthesia [Unknown]
  - Dystonia [Not Recovered/Not Resolved]
  - Micturition urgency [Unknown]
  - Bradykinesia [Unknown]
  - Vaginal prolapse [Unknown]
  - Depression [Unknown]
  - Emotional distress [Unknown]
  - Weight increased [Unknown]
  - Accident [Unknown]
  - Neck pain [Unknown]
  - Sleep disorder [Unknown]
  - Freezing phenomenon [Recovered/Resolved]
  - Feeling abnormal [Unknown]
  - Paraesthesia [Unknown]
  - Neuropathy peripheral [Unknown]
  - Alopecia [Unknown]
  - Vitamin B12 deficiency [Unknown]
  - Muscle spasms [Unknown]
  - Gait inability [Unknown]
  - Feeling drunk [Unknown]
  - Dizziness [Not Recovered/Not Resolved]
  - Blood pressure increased [Recovered/Resolved]
  - Anxiety [Unknown]
  - Back pain [Unknown]
  - Abnormal dreams [Unknown]
  - Pollakiuria [Unknown]
  - Suicidal ideation [Unknown]
  - Tearfulness [Unknown]

NARRATIVE: CASE EVENT DATE: 20230101
